FAERS Safety Report 7492297-9 (Version None)
Quarter: 2011Q2

REPORT INFORMATION
  Report Type: 
  Country: None (occurrence: None)
  Receive Date: 20110519
  Receipt Date: 20110516
  Transmission Date: 20111010
  Serious: Yes (Hospitalization)
  Sender: FDA-Public Use
  Company Number: JP-ABBOTT-10P-087-0692556-00

PATIENT
  Sex: Male

DRUGS (1)
  1. HUMIRA [Suspect]
     Indication: CROHN'S DISEASE
     Route: 058
     Dates: start: 20101124

REACTIONS (5)
  - NEPHROLITHIASIS [None]
  - SUBILEUS [None]
  - HYDRONEPHROSIS [None]
  - CALCULUS URETERIC [None]
  - PYREXIA [None]
